FAERS Safety Report 23021719 (Version 1)
Quarter: 2023Q4

REPORT INFORMATION
  Report Type: Report from Study
  Country: CA (occurrence: CA)
  Receive Date: 20231003
  Receipt Date: 20231003
  Transmission Date: 20240109
  Serious: Yes (Other)
  Sender: FDA-Public Use
  Company Number: CA-BIOVITRUM-2023-CA-015403

PATIENT
  Age: 56 Year
  Sex: Male

DRUGS (1)
  1. KINERET [Suspect]
     Active Substance: ANAKINRA
     Indication: Familial cold autoinflammatory syndrome
     Dosage: EVERY TWO DAYS
     Route: 058
     Dates: start: 20161216

REACTIONS (17)
  - Bronchitis viral [Unknown]
  - Familial cold autoinflammatory syndrome [Unknown]
  - Condition aggravated [Unknown]
  - Off label use [Not Recovered/Not Resolved]
  - Erythema [Unknown]
  - Stress at work [Unknown]
  - Product storage error [Unknown]
  - Product use issue [Unknown]
  - Urticaria [Unknown]
  - Arthralgia [Unknown]
  - Viral upper respiratory tract infection [Unknown]
  - Headache [Unknown]
  - Oropharyngeal pain [Unknown]
  - Otitis media [Unknown]
  - Tympanic membrane perforation [Unknown]
  - Uveitis [Unknown]
  - Product dose omission issue [Unknown]

NARRATIVE: CASE EVENT DATE: 20161216
